FAERS Safety Report 17433177 (Version 1)
Quarter: 2020Q1

REPORT INFORMATION
  Report Type: Spontaneous
  Country: CA (occurrence: CA)
  Receive Date: 20200219
  Receipt Date: 20200219
  Transmission Date: 20200409
  Serious: Yes (Other)
  Sender: FDA-Public Use
  Company Number: CA-AUROBINDO-AUR-APL-2019-087730

PATIENT
  Sex: Female

DRUGS (4)
  1. PROPRANOLOL [Suspect]
     Active Substance: PROPRANOLOL HYDROCHLORIDE
     Indication: MARFAN^S SYNDROME
     Dosage: UNK
     Route: 065
  2. LOSARTAN. [Suspect]
     Active Substance: LOSARTAN
     Indication: PRODUCT USED FOR UNKNOWN INDICATION
     Dosage: UNK
     Route: 065
  3. APO-PROPRANOLOL [Suspect]
     Active Substance: PROPRANOLOL HYDROCHLORIDE
     Indication: PRODUCT USED FOR UNKNOWN INDICATION
     Dosage: UNK
     Route: 065
  4. COZAAR [Suspect]
     Active Substance: LOSARTAN POTASSIUM
     Indication: MARFAN^S SYNDROME
     Dosage: UNK
     Route: 048

REACTIONS (7)
  - Aortic dilatation [Unknown]
  - Product use in unapproved indication [Unknown]
  - Mitral valve incompetence [Unknown]
  - Off label use [Unknown]
  - Tricuspid valve incompetence [Unknown]
  - Drug ineffective [Unknown]
  - Treatment failure [Unknown]
